FAERS Safety Report 9542200 (Version 1)
Quarter: 2013Q3

REPORT INFORMATION
  Report Type: Spontaneous
  Country: IE (occurrence: None)
  Receive Date: 20130918
  Receipt Date: 20130918
  Transmission Date: 20140515
  Serious: Yes (Hospitalization)
  Sender: FDA-Public Use
  Company Number: FK201304246

PATIENT
  Age: 45 Year
  Sex: Female

DRUGS (2)
  1. METHOTREXATE (METHOTREXATE) [Suspect]
     Indication: RHEUMATOID ARTHRITIS
  2. PREDNISOLONE (PREDNISOLONE) [Suspect]
     Indication: ARTHRITIS

REACTIONS (1)
  - Necrotising fasciitis [None]
